FAERS Safety Report 16624750 (Version 5)
Quarter: 2021Q2

REPORT INFORMATION
  Report Type: Spontaneous
  Country: US (occurrence: US)
  Receive Date: 20190724
  Receipt Date: 20210506
  Transmission Date: 20210716
  Serious: Yes (Other)
  Sender: FDA-Public Use
  Company Number: US-PFIZER INC-2019312869

PATIENT
  Age: 54 Year
  Sex: Male

DRUGS (3)
  1. RAPAMUNE [Suspect]
     Active Substance: SIROLIMUS
     Dosage: 3 MG, DAILY
  2. RAPAMUNE [Suspect]
     Active Substance: SIROLIMUS
     Dosage: UNK UNK, 1X/DAY (2MG ALT WITH 3MG AND RAPAMUNE 1MG TABLET, ONCE A DAY, 1MG ALTERNATION WITH 2MG)
  3. RAPAMUNE [Suspect]
     Active Substance: SIROLIMUS
     Dosage: UNK (3 TABLETS ONCE A DAY FOR 90 DAYS ALT 4 DAILY)

REACTIONS (3)
  - Hypertension [Unknown]
  - Deep vein thrombosis [Unknown]
  - Hypothyroidism [Unknown]
